FAERS Safety Report 13694782 (Version 1)
Quarter: 2017Q2

REPORT INFORMATION
  Report Type: Report from Study
  Country: BR (occurrence: BR)
  Receive Date: 20170627
  Receipt Date: 20170627
  Transmission Date: 20170830
  Serious: Yes (Hospitalization, Other)
  Sender: FDA-Public Use
  Company Number: PHHY2017BR092703

PATIENT
  Age: 81 Year
  Sex: Male
  Weight: 85 kg

DRUGS (2)
  1. TRAVATAN Z [Suspect]
     Active Substance: TRAVOPROST
     Indication: INTRAOCULAR PRESSURE INCREASED
     Dosage: UNK, QHS
     Route: 047
     Dates: start: 20170208
  2. TRAVATAN Z [Suspect]
     Active Substance: TRAVOPROST
     Dosage: UNK, QHS
     Route: 047

REACTIONS (10)
  - Pneumonia [Unknown]
  - Tracheitis [Unknown]
  - Visual impairment [Unknown]
  - General physical health deterioration [Unknown]
  - Cerebrovascular accident [Recovered/Resolved]
  - Paralysis [Unknown]
  - Corneal reflex decreased [Unknown]
  - Pallor [Unknown]
  - Cerebrovascular accident [Not Recovered/Not Resolved]
  - Hypokinesia [Unknown]

NARRATIVE: CASE EVENT DATE: 20170219
